FAERS Safety Report 15612948 (Version 2)
Quarter: 2021Q4

REPORT INFORMATION
  Report Type: Spontaneous
  Country: ES (occurrence: ES)
  Receive Date: 20181113
  Receipt Date: 20211111
  Transmission Date: 20220303
  Serious: Yes (Hospitalization, Other)
  Sender: FDA-Public Use
  Company Number: None

PATIENT
  Age: 54 Year
  Sex: Female

DRUGS (3)
  1. METHOTREXATE SODIUM [Suspect]
     Active Substance: METHOTREXATE SODIUM
     Dosage: 1323 MG, SINGLE
     Route: 042
     Dates: start: 20180828, end: 20180829
  2. VANCOMYCIN HYDROCHLORIDE [Suspect]
     Active Substance: VANCOMYCIN HYDROCHLORIDE
     Indication: Sepsis
     Dosage: 1 G, 2X/DAY (EACH 12H)
     Route: 042
     Dates: start: 20180921, end: 20180924
  3. FUROSEMIDE [Suspect]
     Active Substance: FUROSEMIDE
     Dosage: 40 MG, 1X/DAY
     Route: 042
     Dates: start: 20180827

REACTIONS (3)
  - Deafness [Unknown]
  - Bacterial sepsis [Unknown]
  - Respiratory tract infection fungal [Unknown]

NARRATIVE: CASE EVENT DATE: 20180922
